FAERS Safety Report 9337266 (Version 2)
Quarter: 2013Q4

REPORT INFORMATION
  Report Type: Spontaneous
  Country: JP (occurrence: JP)
  Receive Date: 20130607
  Receipt Date: 20131029
  Transmission Date: 20140711
  Serious: Yes (Hospitalization)
  Sender: FDA-Public Use
  Company Number: JP-JNJFOC-20130600049

PATIENT
  Age: 77 Year
  Sex: Female
  Weight: 40 kg

DRUGS (12)
  1. RISPERDAL [Suspect]
     Indication: SEDATION
     Route: 048
     Dates: start: 20130228, end: 20130304
  2. RISPERDAL [Suspect]
     Indication: DEPRESSION
     Route: 048
     Dates: start: 20130228, end: 20130304
  3. ARICEPT [Suspect]
     Indication: DEMENTIA
     Dosage: 3-10  MG PER DAY
     Route: 048
     Dates: start: 20130207, end: 20130304
  4. CERCINE [Concomitant]
     Route: 065
  5. AZULENE-GLUTAMINE FINE GRANULE [Concomitant]
     Route: 048
  6. PEON [Concomitant]
     Route: 048
  7. TERNELIN [Concomitant]
     Route: 048
  8. METHYCOBAL [Concomitant]
     Route: 065
  9. BLOPRESS [Concomitant]
     Route: 048
  10. PRAVASTATIN SODIUM [Concomitant]
     Route: 048
  11. BASEN [Concomitant]
     Route: 048
  12. AMARYL [Concomitant]
     Route: 048

REACTIONS (6)
  - Salivary hypersecretion [Recovered/Resolved]
  - Hyperhidrosis [Recovered/Resolved]
  - Blood creatine phosphokinase increased [Recovered/Resolved]
  - Neuroleptic malignant syndrome [Recovering/Resolving]
  - Off label use [Unknown]
  - Tremor [Recovered/Resolved]
